FAERS Safety Report 6945773-9 (Version None)
Quarter: 2010Q3

REPORT INFORMATION
  Report Type: 
  Country: None (occurrence: None)
  Receive Date: 20100827
  Receipt Date: 20100820
  Transmission Date: 20110219
  Serious: Yes (Life-Threatening, Hospitalization)
  Sender: FDA-Public Use
  Company Number: B0669489A

PATIENT
  Sex: Female
  Weight: 70 kg

DRUGS (5)
  1. PROPAFENONE HCL [Suspect]
     Route: 048
     Dates: start: 19930101, end: 20050517
  2. TERTENSIF SR [Concomitant]
     Dosage: 1.5MG PER DAY
     Route: 048
  3. ENALAPRIL MALEATE [Concomitant]
     Dosage: 20MG TWICE PER DAY
     Route: 048
  4. ASPIRIN [Concomitant]
     Dosage: 100MG PER DAY
     Route: 048
  5. ALPRAZOLAM [Concomitant]
     Dosage: .5MG PER DAY
     Route: 048

REACTIONS (2)
  - ANGINA PECTORIS [None]
  - VENTRICULAR TACHYCARDIA [None]
